FAERS Safety Report 6301904-5 (Version None)
Quarter: 2009Q3

REPORT INFORMATION
  Report Type: 
  Country: None (occurrence: None)
  Receive Date: 20090807
  Receipt Date: 20090729
  Transmission Date: 20100115
  Serious: Yes (Other)
  Sender: FDA-Public Use
  Company Number: US-ROCHE-647478

PATIENT
  Age: 54 Year
  Sex: Female

DRUGS (1)
  1. ACCUTANE [Suspect]
     Indication: DRUG USE FOR UNKNOWN INDICATION
     Route: 065

REACTIONS (5)
  - BLINDNESS TRANSIENT [None]
  - DIARRHOEA [None]
  - HEADACHE [None]
  - VISION BLURRED [None]
  - VOMITING [None]
